FAERS Safety Report 10009960 (Version 2)
Quarter: 2014Q1

REPORT INFORMATION
  Report Type: Spontaneous
  Country: US (occurrence: US)
  Receive Date: 20140312
  Receipt Date: 20140312
  Transmission Date: 20141002
  Serious: No
  Sender: FDA-Public Use
  Company Number: US-INCYTE CORPORATION-2013IN000383

PATIENT
  Age: 70 Year
  Sex: Male

DRUGS (3)
  1. JAKAFI [Suspect]
     Indication: MYELOFIBROSIS
     Dosage: 20 MG, BID
     Route: 048
     Dates: start: 201207, end: 20130224
  2. JAKAFI [Suspect]
     Dosage: 20 MG, TID
     Route: 048
     Dates: start: 20130225
  3. LEVOTHYROXINE [Concomitant]

REACTIONS (2)
  - Splenomegaly [Not Recovered/Not Resolved]
  - White blood cell count increased [Recovering/Resolving]
